FAERS Safety Report 9799317 (Version 1)
Quarter: 2014Q1

REPORT INFORMATION
  Report Type: Spontaneous
  Country: US (occurrence: None)
  Receive Date: 20140103
  Receipt Date: 20140103
  Transmission Date: 20141002
  Serious: Yes (Other)
  Sender: FDA-Public Use
  Company Number: None

PATIENT
  Age: 33 Year
  Sex: Male
  Weight: 84.82 kg

DRUGS (5)
  1. INCIVEK (TELAPREVIR) [Suspect]
     Indication: HEPATITIS C
     Dosage: 2 PILLS, 7-9 HOURS APART
     Route: 048
     Dates: start: 20131220, end: 20131225
  2. PEGASYS [Concomitant]
  3. RIBAVIRIN [Concomitant]
  4. INCIVEK [Concomitant]
  5. SUBOXONE [Concomitant]

REACTIONS (3)
  - Rash [None]
  - Scar [None]
  - Rash [None]
